FAERS Safety Report 22247569 (Version 1)
Quarter: 2023Q2

REPORT INFORMATION
  Report Type: Report from Study
  Country: US (occurrence: US)
  Receive Date: 20230425
  Receipt Date: 20230425
  Transmission Date: 20230722
  Serious: Yes (Other)
  Sender: FDA-Public Use
  Company Number: US-ABBVIE-4739856

PATIENT
  Age: 65 Year
  Sex: Female

DRUGS (1)
  1. RINVOQ [Suspect]
     Active Substance: UPADACITINIB
     Indication: Rheumatoid arthritis
     Route: 048
     Dates: start: 20220901

REACTIONS (5)
  - Renal neoplasm [Unknown]
  - Dizziness [Unknown]
  - Depression [Unknown]
  - Abdominal pain [Unknown]
  - Asthenia [Unknown]

NARRATIVE: CASE EVENT DATE: 20230301
